FAERS Safety Report 12484306 (Version 1)
Quarter: 2016Q2

REPORT INFORMATION
  Report Type: Spontaneous
  Country: CH (occurrence: CH)
  Receive Date: 20160621
  Receipt Date: 20160621
  Transmission Date: 20160815
  Serious: Yes (Hospitalization, Other)
  Sender: FDA-Public Use
  Company Number: CH-AMGEN-CHESP2016076757

PATIENT
  Age: 80 Year
  Sex: Female
  Weight: 73 kg

DRUGS (6)
  1. MINALGIN [Concomitant]
     Active Substance: METAMIZOLE
     Dosage: 500 MG, UNK
  2. PROLIA [Suspect]
     Active Substance: DENOSUMAB
     Indication: OSTEOPOROSIS
     Dosage: 60 MG, Q6MO
     Route: 058
     Dates: start: 20140911, end: 20150324
  3. DAFALGAN [Concomitant]
     Active Substance: ACETAMINOPHEN
     Dosage: 500 MG, UNK
     Route: 048
  4. JAKAFI [Concomitant]
     Active Substance: RUXOLITINIB
     Indication: POLYCYTHAEMIA
     Dosage: 5 MG, BID
  5. ASPIRIN CARDIO [Concomitant]
     Active Substance: ASPIRIN
     Dosage: 100 MG, QD
     Route: 048
  6. VITAMIN D3 WILD [Concomitant]
     Dosage: 20 UNK, QWK

REACTIONS (2)
  - Osteonecrosis [Not Recovered/Not Resolved]
  - Osteomyelitis [Not Recovered/Not Resolved]

NARRATIVE: CASE EVENT DATE: 201512
